FAERS Safety Report 7670648-X (Version None)
Quarter: 2011Q3

REPORT INFORMATION
  Report Type: 
  Country: None (occurrence: None)
  Receive Date: 20110809
  Receipt Date: 20110801
  Transmission Date: 20111222
  Serious: Yes (Hospitalization)
  Sender: FDA-Public Use
  Company Number: US-BIOGENIDEC-2011BI029224

PATIENT
  Sex: Female

DRUGS (5)
  1. VITAMIN B-12 [Concomitant]
  2. TYSABRI [Suspect]
     Indication: MULTIPLE SCLEROSIS
     Route: 042
     Dates: start: 20100601
  3. ZANAFLEX [Concomitant]
  4. BACLOFEN [Concomitant]
  5. VITAMIN D [Concomitant]

REACTIONS (2)
  - URINARY TRACT INFECTION [None]
  - FATIGUE [None]
